FAERS Safety Report 12396232 (Version 1)
Quarter: 2016Q2

REPORT INFORMATION
  Report Type: Spontaneous
  Country: FR (occurrence: FR)
  Receive Date: 20160524
  Receipt Date: 20160524
  Transmission Date: 20160815
  Serious: Yes (Other)
  Sender: FDA-Public Use
  Company Number: FR-ROCHE-1761873

PATIENT
  Age: 45 Year
  Sex: Female

DRUGS (14)
  1. OXALIPLATIN HOSPIRA [Suspect]
     Active Substance: OXALIPLATIN
     Indication: ADENOCARCINOMA
     Dosage: FOR 120 MINUTES: 02:05 PM TO 04:05 PM?(7TH COURSE OF OXALIPLATIN).
     Route: 013
     Dates: start: 20160127, end: 20160127
  2. OXALIPLATIN HOSPIRA [Suspect]
     Active Substance: OXALIPLATIN
     Route: 013
     Dates: start: 201512
  3. 5-FU [Concomitant]
     Active Substance: FLUOROURACIL
     Route: 042
     Dates: start: 20160427
  4. SOLU-MEDROL [Concomitant]
     Active Substance: METHYLPREDNISOLONE SODIUM SUCCINATE
     Dosage: AT 11:20 AM
     Route: 065
     Dates: start: 20160427
  5. ZOPHREN [Concomitant]
     Active Substance: ONDANSETRON
     Dosage: AT 11:20 AM
     Route: 065
     Dates: start: 20160427
  6. 5-FU [Concomitant]
     Active Substance: FLUOROURACIL
     Route: 065
     Dates: start: 201512
  7. IRINOTECAN [Concomitant]
     Active Substance: IRINOTECAN
     Route: 065
     Dates: start: 201512
  8. TRAMADOL. [Concomitant]
     Active Substance: TRAMADOL
     Dosage: AT 02:50 PM
     Route: 042
  9. AVASTIN [Suspect]
     Active Substance: BEVACIZUMAB
     Route: 042
     Dates: start: 201512
  10. IRINOTECAN [Concomitant]
     Active Substance: IRINOTECAN
     Route: 042
     Dates: start: 20160427
  11. TRAMADOL. [Concomitant]
     Active Substance: TRAMADOL
     Dosage: AT 02:35 PM
     Route: 040
     Dates: start: 20160427
  12. FOLINIC ACID [Concomitant]
     Active Substance: LEUCOVORIN
     Route: 065
     Dates: start: 201512
  13. AVASTIN [Suspect]
     Active Substance: BEVACIZUMAB
     Indication: ADENOCARCINOMA
     Dosage: FOR 90 MINUTES: 12:20 PM TO 01:30 PM
     Route: 042
     Dates: start: 20160127, end: 20160127
  14. EMEND [Concomitant]
     Active Substance: APREPITANT
     Dosage: AT 11:20 AM
     Route: 065
     Dates: start: 20160427

REACTIONS (4)
  - Paraesthesia [Recovered/Resolved]
  - Rash maculo-papular [Recovered/Resolved]
  - Oedema peripheral [Recovered/Resolved]
  - Dyspnoea [Recovered/Resolved]

NARRATIVE: CASE EVENT DATE: 20160127
